FAERS Safety Report 10706618 (Version 1)
Quarter: 2015Q1

REPORT INFORMATION
  Report Type: Report from Study
  Country: ZA (occurrence: ZA)
  Receive Date: 20150113
  Receipt Date: 20150113
  Transmission Date: 20150721
  Serious: Yes (Hospitalization)
  Sender: FDA-Public Use
  Company Number: PHHY2015ZA002018

PATIENT
  Age: 60 Year
  Sex: Female

DRUGS (1)
  1. EXFORGE [Suspect]
     Active Substance: AMLODIPINE BESYLATE\VALSARTAN
     Indication: HYPERTENSION
     Route: 048
     Dates: start: 2013

REACTIONS (3)
  - Pneumonia [Recovered/Resolved]
  - Thrombosis [Recovered/Resolved]
  - Addison^s disease [Recovered/Resolved]

NARRATIVE: CASE EVENT DATE: 201412
